FAERS Safety Report 9730030 (Version 1)
Quarter: 2013Q4

REPORT INFORMATION
  Report Type: Spontaneous
  Country: TR (occurrence: TR)
  Receive Date: 20131204
  Receipt Date: 20131204
  Transmission Date: 20140711
  Serious: Yes (Other)
  Sender: FDA-Public Use
  Company Number: PHHY2013TR137993

PATIENT
  Age: 86 Year
  Sex: Male

DRUGS (4)
  1. QUETIAPINE [Suspect]
     Indication: SUBSTANCE-INDUCED PSYCHOTIC DISORDER
     Dosage: 25 MG/DAY
  2. HALOPERIDOL [Suspect]
     Indication: SUBSTANCE-INDUCED PSYCHOTIC DISORDER
  3. OLANZAPINE [Concomitant]
     Indication: SUBSTANCE-INDUCED PSYCHOTIC DISORDER
     Dosage: 2.5 MG, BID
  4. METHYLPREDNISOLONE [Concomitant]
     Dosage: 40 MG/DAY

REACTIONS (4)
  - Psychotic disorder [Recovered/Resolved]
  - Insomnia [Recovered/Resolved]
  - Agitation [Recovered/Resolved]
  - Hallucination [Unknown]
